FAERS Safety Report 6158253-8 (Version None)
Quarter: 2009Q2

REPORT INFORMATION
  Report Type: 
  Country: None (occurrence: None)
  Receive Date: 20090417
  Receipt Date: 20070625
  Transmission Date: 20091009
  Serious: Yes (Hospitalization)
  Sender: FDA-Public Use
  Company Number: US-ASTRAZENECA-2006UW24785

PATIENT
  Age: 17893 Day
  Sex: Male
  Weight: 130.6 kg

DRUGS (22)
  1. SEROQUEL [Suspect]
     Indication: MENTAL DISORDER
     Route: 048
     Dates: start: 19980701
  2. SEROQUEL [Suspect]
     Indication: DEPRESSION
     Route: 048
     Dates: start: 19980701
  3. SEROQUEL [Suspect]
     Dosage: 100-800 MG
     Route: 048
     Dates: start: 19990829
  4. SEROQUEL [Suspect]
     Dosage: 100-800 MG
     Route: 048
     Dates: start: 19990829
  5. HALDOL [Concomitant]
     Dates: start: 19890101, end: 19980101
  6. MARIJUANA [Concomitant]
     Dates: start: 20020101, end: 20030101
  7. DEPAKOTE [Concomitant]
  8. ATENOLOL [Concomitant]
  9. COLACE [Concomitant]
  10. ZYPREXA [Concomitant]
  11. LOPID [Concomitant]
  12. BENICAR [Concomitant]
  13. CATAPRES [Concomitant]
  14. NIFEDIPINE [Concomitant]
  15. GLUCOPHAGE [Concomitant]
  16. GLUCOTROL [Concomitant]
  17. GEMFIBROZIL [Concomitant]
  18. MIRALAX [Concomitant]
  19. MAXZIDE [Concomitant]
  20. BENZTROPINE MESYLATE [Concomitant]
  21. LARITIN [Concomitant]
  22. COGENTIN [Concomitant]

REACTIONS (8)
  - BIPOLAR DISORDER [None]
  - DELUSION [None]
  - DIABETES MELLITUS [None]
  - MANIA [None]
  - PSYCHOTIC DISORDER [None]
  - SCHIZOAFFECTIVE DISORDER [None]
  - SYPHILIS [None]
  - TYPE 2 DIABETES MELLITUS [None]
